FAERS Safety Report 4330444-8 (Version None)
Quarter: 2004Q1

REPORT INFORMATION
  Report Type: 
  Country: None (occurrence: None)
  Receive Date: 20040330
  Receipt Date: 20040318
  Transmission Date: 20041129
  Serious: Yes (Disabling)
  Sender: FDA-Public Use
  Company Number: 04H-083-0254022-00

PATIENT
  Age: 59 Year
  Sex: Female

DRUGS (5)
  1. HEPARIN SODIUM [Suspect]
     Indication: THROMBOSIS PROPHYLAXIS
     Dosage: 25,000 IU IN 24 HOURS
  2. ALTEPLASE [Suspect]
     Indication: THROMBOSIS PROPHYLAXIS
     Dosage: 100 MG, ONCE, 90 MINUTES
  3. ACETYLSALICYLIC ACID SRT [Suspect]
     Indication: THROMBOSIS PROPHYLAXIS
     Dosage: 100 MG, PER DAY
  4. METOPROLOL [Concomitant]
  5. NITRATES [Concomitant]

REACTIONS (6)
  - ACTIVATED PARTIAL THROMBOPLASTIN TIME PROLONGED [None]
  - EXTRADURAL HAEMATOMA [None]
  - PAIN IN EXTREMITY [None]
  - PARAPLEGIA [None]
  - SPINAL CORD COMPRESSION [None]
  - SPINAL CORD DISORDER [None]
